FAERS Safety Report 5974842-5 (Version None)
Quarter: 2008Q4

REPORT INFORMATION
  Report Type: 
  Country: None (occurrence: None)
  Receive Date: 20081202
  Receipt Date: 20081128
  Transmission Date: 20090506
  Serious: Yes (Hospitalization)
  Sender: FDA-Public Use
  Company Number: GB-PFIZER INC-2008101102

PATIENT
  Age: 59 Year
  Sex: Female
  Weight: 91 kg

DRUGS (4)
  1. LYRICA [Suspect]
     Indication: FIBROMYALGIA
     Route: 048
     Dates: start: 20081103, end: 20081103
  2. LYRICA [Suspect]
     Indication: PAIN
  3. BISOPROLOL FUMARATE [Concomitant]
     Indication: HYPERTENSION
     Route: 048
     Dates: start: 20080317
  4. ACETAMINOPHEN [Concomitant]
     Indication: ANALGESIA
     Route: 048
     Dates: start: 20081001

REACTIONS (5)
  - ANGIOEDEMA [None]
  - CHEST DISCOMFORT [None]
  - HYPERTENSION [None]
  - RASH [None]
  - THROAT TIGHTNESS [None]
